FAERS Safety Report 5799086-1 (Version None)
Quarter: 2008Q3

REPORT INFORMATION
  Report Type: 
  Country: None (occurrence: None)
  Receive Date: 20080702
  Receipt Date: 20080630
  Transmission Date: 20090109
  Serious: Yes (Life-Threatening)
  Sender: FDA-Public Use
  Company Number: IT-BOEHRINGER INGELHEIM GMBH, GERMANY-2008-IT-00113IT

PATIENT
  Sex: Female

DRUGS (8)
  1. MOBIC [Suspect]
     Indication: OSTEOARTHRITIS
     Route: 048
     Dates: start: 20080101, end: 20080519
  2. EUTIROX [Concomitant]
  3. TICLOPIDINE HCL [Concomitant]
  4. TOTALIP [Concomitant]
  5. MEPRAL [Concomitant]
  6. GLICLAZIDE [Concomitant]
  7. DIURESIX [Concomitant]
  8. NAPRILENE [Concomitant]

REACTIONS (4)
  - GASTRIC ULCER HAEMORRHAGE [None]
  - HAEMORRHAGIC ANAEMIA [None]
  - HYPERTENSIVE HEART DISEASE [None]
  - HYPERTENSIVE NEPHROPATHY [None]
